FAERS Safety Report 5345939-8 (Version None)
Quarter: 2007Q2

REPORT INFORMATION
  Report Type: 
  Country: None (occurrence: None)
  Receive Date: 20070605
  Receipt Date: 20070527
  Transmission Date: 20071010
  Serious: Yes (Hospitalization)
  Sender: FDA-Public Use
  Company Number: B0470620A

PATIENT
  Age: 74 Year
  Sex: Female

DRUGS (18)
  1. ARTIST [Suspect]
     Indication: HYPERTENSION
     Dosage: 10MG PER DAY
     Route: 048
     Dates: start: 20040615, end: 20070410
  2. BEPRICOR [Suspect]
     Dosage: 50MG TWICE PER DAY
     Route: 048
     Dates: start: 20040911, end: 20070410
  3. VASOLAN [Suspect]
     Indication: ATRIAL FIBRILLATION
     Dosage: 80MG THREE TIMES PER DAY
     Route: 048
     Dates: end: 20070410
  4. EUGLUCON [Concomitant]
     Route: 065
  5. TAKEPRON [Concomitant]
     Route: 065
     Dates: start: 20051018
  6. ACTOS [Concomitant]
     Route: 065
     Dates: start: 20050629, end: 20070410
  7. DIOVAN [Concomitant]
     Route: 065
     Dates: start: 20041119
  8. CALBLOCK [Concomitant]
     Route: 065
     Dates: start: 20060509, end: 20070410
  9. RIZE [Concomitant]
     Route: 065
     Dates: end: 20070410
  10. ASPIRIN [Concomitant]
     Route: 065
     Dates: start: 20041217
  11. BASEN [Concomitant]
     Route: 065
     Dates: start: 20060902, end: 20070410
  12. WARFARIN SODIUM [Concomitant]
     Route: 065
     Dates: start: 20060902
  13. LENDORMIN [Concomitant]
     Route: 065
     Dates: start: 20041020
  14. MAGNESIUM SULFATE [Concomitant]
     Route: 042
  15. GLUCOSE [Concomitant]
     Route: 042
  16. CIPRALAN [Concomitant]
     Dosage: 200MG PER DAY
     Route: 065
  17. VERAPAMIL HYDROCHLORIDE [Concomitant]
     Dosage: 120MG PER DAY
     Route: 065
  18. OXYGEN [Concomitant]
     Dosage: 3L UNKNOWN

REACTIONS (13)
  - ARRHYTHMIA [None]
  - ATRIAL FIBRILLATION [None]
  - ATRIOVENTRICULAR BLOCK [None]
  - ATRIOVENTRICULAR BLOCK SECOND DEGREE [None]
  - BLOOD LACTATE DEHYDROGENASE INCREASED [None]
  - C-REACTIVE PROTEIN INCREASED [None]
  - CHEST DISCOMFORT [None]
  - DISCOMFORT [None]
  - EOSINOPHIL COUNT INCREASED [None]
  - GAMMA-GLUTAMYLTRANSFERASE INCREASED [None]
  - PROTHROMBIN TIME PROLONGED [None]
  - TORSADE DE POINTES [None]
  - VENTRICULAR EXTRASYSTOLES [None]
